FAERS Safety Report 4713470-6 (Version None)
Quarter: 2005Q3

REPORT INFORMATION
  Report Type: 
  Country: None (occurrence: None)
  Receive Date: 20050701
  Receipt Date: 20040720
  Transmission Date: 20060218
  Serious: Yes (Hospitalization)
  Sender: FDA-Public Use
  Company Number: US-2004-029212

PATIENT
  Age: 39 Year
  Sex: Female
  Weight: 50.8 kg

DRUGS (3)
  1. YASMIN [Suspect]
     Indication: ENDOMETRIOSIS
     Dosage: 1 TAB(S), 1X/DAY, ORAL
     Route: 048
     Dates: start: 20030801, end: 20040503
  2. XANAX [Concomitant]
  3. ZOLOFT [Concomitant]

REACTIONS (3)
  - EPISTAXIS [None]
  - MIGRAINE [None]
  - THROMBOTIC STROKE [None]
